FAERS Safety Report 12979724 (Version 3)
Quarter: 2017Q1

REPORT INFORMATION
  Report Type: Spontaneous
  Country: JP (occurrence: JP)
  Receive Date: 20161128
  Receipt Date: 20170123
  Transmission Date: 20170428
  Serious: Yes (Life-Threatening, Hospitalization, Other)
  Sender: FDA-Public Use
  Company Number: JP-GLAXOSMITHKLINE-JP2016JPN172191

PATIENT
  Age: 5 Year
  Sex: Female
  Weight: 17.8 kg

DRUGS (3)
  1. FLUTIDE [Suspect]
     Active Substance: FLUTICASONE PROPIONATE
     Indication: INFANTILE ASTHMA
     Dosage: 200 ?G, 1D
     Route: 055
     Dates: start: 201406, end: 201408
  2. ONON [Concomitant]
     Active Substance: PRANLUKAST
     Indication: INFANTILE ASTHMA
     Dosage: UNK
  3. FLUTIDE [Suspect]
     Active Substance: FLUTICASONE PROPIONATE
     Dosage: 400 ?G, 1D
     Route: 055
     Dates: start: 201408, end: 201506

REACTIONS (8)
  - Hypoglycaemia [Recovered/Resolved]
  - Hypoglycaemic seizure [Recovered/Resolved]
  - Body height below normal [Not Recovered/Not Resolved]
  - Adrenal insufficiency [Recovering/Resolving]
  - Blood cortisol decreased [Recovering/Resolving]
  - Adrenocortical insufficiency acute [Recovering/Resolving]
  - Loss of consciousness [Unknown]
  - Nausea [Unknown]

NARRATIVE: CASE EVENT DATE: 20141121
